FAERS Safety Report 9858711 (Version 1)
Quarter: 2014Q1

REPORT INFORMATION
  Report Type: Report from Study
  Country: FR (occurrence: FR)
  Receive Date: 20140131
  Receipt Date: 20140131
  Transmission Date: 20141002
  Serious: Yes (Other)
  Sender: FDA-Public Use
  Company Number: FR-PFIZER INC-2014026532

PATIENT
  Age: 69 Year
  Sex: Female

DRUGS (1)
  1. NARDIL [Suspect]
     Indication: DEPRESSION
     Dosage: 45 MG, DAILY
     Route: 048
     Dates: start: 20120809, end: 20120910

REACTIONS (3)
  - Weight increased [Recovered/Resolved]
  - Paresis [Recovered/Resolved]
  - Walking disability [Recovered/Resolved]
